FAERS Safety Report 20245222 (Version 1)
Quarter: 2021Q4

REPORT INFORMATION
  Report Type: Spontaneous
  Country: IT (occurrence: IT)
  Receive Date: 20211229
  Receipt Date: 20211229
  Transmission Date: 20220303
  Serious: Yes (Other)
  Sender: FDA-Public Use
  Company Number: IT-PFIZER INC-202101811666

PATIENT
  Sex: Male

DRUGS (2)
  1. AXITINIB [Suspect]
     Active Substance: AXITINIB
     Indication: Metastatic renal cell carcinoma
  2. PEMBROLIZUMAB [Suspect]
     Active Substance: PEMBROLIZUMAB
     Indication: Metastatic renal cell carcinoma

REACTIONS (6)
  - Nephritis [Unknown]
  - Hepatitis [Unknown]
  - Hyperthyroidism [Unknown]
  - Hypothyroidism [Unknown]
  - Rash [Unknown]
  - Off label use [Unknown]
